FAERS Safety Report 19883205 (Version 1)
Quarter: 2021Q3

REPORT INFORMATION
  Report Type: Spontaneous
  Country: US (occurrence: US)
  Receive Date: 20210926
  Receipt Date: 20210926
  Transmission Date: 20211014
  Serious: No
  Sender: FDA-Public Use
  Company Number: US-ORGANON-O2109USA000323

PATIENT
  Age: 29 Year
  Sex: Female
  Weight: 86.17 kg

DRUGS (1)
  1. NEXPLANON [Suspect]
     Active Substance: ETONOGESTREL
     Indication: CONTRACEPTION
     Dosage: 68MG IMPLANT
     Route: 059
     Dates: end: 20210831

REACTIONS (5)
  - Complication of device removal [Recovered/Resolved]
  - Menstruation irregular [Recovering/Resolving]
  - Heavy menstrual bleeding [Recovering/Resolving]
  - Complication of device removal [Recovered/Resolved]
  - Device placement issue [Recovered/Resolved]

NARRATIVE: CASE EVENT DATE: 20210830
